FAERS Safety Report 10214500 (Version 1)
Quarter: 2014Q2

REPORT INFORMATION
  Report Type: Spontaneous
  Country: CN (occurrence: CN)
  Receive Date: 20140603
  Receipt Date: 20140603
  Transmission Date: 20141212
  Serious: Yes (Other)
  Sender: FDA-Public Use
  Company Number: CN-ASTRAZENECA-2014SE37029

PATIENT
  Age: 75 Year
  Sex: Male

DRUGS (2)
  1. BUDESONIDE [Suspect]
     Indication: CHRONIC OBSTRUCTIVE PULMONARY DISEASE
     Route: 055
     Dates: start: 20130912, end: 20130912
  2. COMPOUND IPRATROPINE [Suspect]
     Indication: CHRONIC OBSTRUCTIVE PULMONARY DISEASE
     Route: 065
     Dates: start: 20130912, end: 20130912

REACTIONS (4)
  - Arrhythmia [Recovering/Resolving]
  - Atrial fibrillation [Unknown]
  - Electrocardiogram ST segment depression [Unknown]
  - Palpitations [Unknown]
